FAERS Safety Report 24151671 (Version 1)
Quarter: 2024Q3

REPORT INFORMATION
  Report Type: Spontaneous
  Country: FR (occurrence: FR)
  Receive Date: 20240730
  Receipt Date: 20240730
  Transmission Date: 20241016
  Serious: Yes (Hospitalization, Other)
  Sender: AUROBINDO
  Company Number: FR-MLMSERVICE-20240617-PI102143-00232-1

PATIENT
  Age: 6 Decade
  Sex: Female
  Weight: 64 kg

DRUGS (5)
  1. MYCOPHENOLATE MOFETIL [Suspect]
     Active Substance: MYCOPHENOLATE MOFETIL
     Indication: Immunosuppressant drug therapy
     Dosage: 2000 MILLIGRAM, ONCE A DAY
     Route: 048
     Dates: start: 202107
  2. THYMOCYTE IMMUNE GLOBULIN NOS [Suspect]
     Active Substance: THYMOCYTE IMMUNE GLOBULIN NOS
     Indication: Immunosuppressant drug therapy
     Dosage: 50 MILLIGRAM (ON THE 2 LAST DAYS)
     Route: 042
     Dates: start: 2021, end: 2021
  3. THYMOCYTE IMMUNE GLOBULIN NOS [Suspect]
     Active Substance: THYMOCYTE IMMUNE GLOBULIN NOS
     Dosage: 75 MILLIGRAM, ONCE A DAY
     Route: 042
     Dates: start: 2021, end: 2021
  4. THYMOCYTE IMMUNE GLOBULIN NOS [Suspect]
     Active Substance: THYMOCYTE IMMUNE GLOBULIN NOS
     Dosage: 87.5 MILLIGRAM, ONCE A DAY (1ST DAY OF TRANSPLANTATION DURING 2 DAYS)
     Route: 042
     Dates: start: 202107, end: 2021
  5. TACROLIMUS [Suspect]
     Active Substance: TACROLIMUS
     Indication: Immunosuppressant drug therapy
     Dosage: 10 MILLIGRAM, BEGINNING AT THE 3TH DAY
     Route: 048
     Dates: start: 202107

REACTIONS (3)
  - Hepatitis E [Recovered/Resolved]
  - Chronic hepatitis [Recovered/Resolved]
  - Lymphopenia [Unknown]

NARRATIVE: CASE EVENT DATE: 20210101
